FAERS Safety Report 4569572-0 (Version None)
Quarter: 2005Q1

REPORT INFORMATION
  Report Type: 
  Country: None (occurrence: None)
  Receive Date: 20050201
  Receipt Date: 20050121
  Transmission Date: 20050727
  Serious: Yes (Other)
  Sender: FDA-Public Use
  Company Number: K200500034

PATIENT
  Age: 21 Year
  Sex: Female

DRUGS (1)
  1. NORDETTE-21 [Suspect]

REACTIONS (3)
  - ANTINUCLEAR ANTIBODY POSITIVE [None]
  - C-REACTIVE PROTEIN INCREASED [None]
  - CUTANEOUS LUPUS ERYTHEMATOSUS [None]
